FAERS Safety Report 16834980 (Version 1)
Quarter: 2019Q3

REPORT INFORMATION
  Report Type: Spontaneous
  Country: PL (occurrence: PL)
  Receive Date: 20190920
  Receipt Date: 20190920
  Transmission Date: 20191005
  Serious: Yes (Hospitalization)
  Sender: FDA-Public Use
  Company Number: PL-ELI_LILLY_AND_COMPANY-PL201909008591

PATIENT
  Age: 44 Year
  Sex: Male

DRUGS (9)
  1. INSULIN HUMAN [Suspect]
     Active Substance: INSULIN HUMAN
     Dosage: 6 IU AT 8:00 AND BEFORE NUTRITION; 32 IU NUTRITIONAL MIXTURE
  2. INSULIN ASPART [Suspect]
     Active Substance: INSULIN ASPART
     Indication: PRODUCT USED FOR UNKNOWN INDICATION
     Dosage: UNK, BEFORE EACH MEAL
     Route: 065
  3. INSULIN ASPART [Suspect]
     Active Substance: INSULIN ASPART
     Dosage: 8 -4-4 IU, BEFORE MEAL
     Route: 065
  4. INSULIN ASPART [Suspect]
     Active Substance: INSULIN ASPART
     Dosage: 6-8-6 IU, BEFORE MEAL
  5. INSULIN HUMAN [Suspect]
     Active Substance: INSULIN HUMAN
     Dosage: 50 INTERNATIONAL UNIT, DAILY
     Route: 065
  6. INSULIN HUMAN [Suspect]
     Active Substance: INSULIN HUMAN
     Dosage: 6 IU AT 8:00 AND BEFORE NUTRITION; 24 IU NUTRITIONAL MIXTURE
  7. INSULIN HUMAN [Suspect]
     Active Substance: INSULIN HUMAN
     Indication: PRODUCT USED FOR UNKNOWN INDICATION
     Dosage: 6 INTERNATIONAL UNIT, EACH EVENING
     Route: 065
  8. INSULIN HUMAN [Suspect]
     Active Substance: INSULIN HUMAN
     Dosage: 6 IU AT 8:00; 14 IU BEFORE NUTRITION; 32 IU NUTRITIONAL MIXTURE
     Route: 065
  9. INSULIN ASPART [Suspect]
     Active Substance: INSULIN ASPART
     Dosage: 6-6-6 IU BEFORE MEALS

REACTIONS (2)
  - Device related infection [Unknown]
  - Blood glucose fluctuation [Unknown]
